FAERS Safety Report 6479783-5 (Version None)
Quarter: 2009Q4

REPORT INFORMATION
  Report Type: 
  Country: None (occurrence: None)
  Receive Date: 20091208
  Receipt Date: 20091202
  Transmission Date: 20100525
  Serious: Yes (Death, Hospitalization, Other)
  Sender: FDA-Public Use
  Company Number: PHHY2008CA03740

PATIENT
  Sex: Male

DRUGS (17)
  1. CO-DIOVAN T32564+ [Suspect]
     Indication: HYPERTENSION
     Dosage: 160/25MG, QD
     Route: 048
  2. CALCIUM CHANNEL BLOCKERS [Concomitant]
     Indication: HYPERTENSION
  3. ASPIRIN [Concomitant]
     Dosage: 325 MG, UNK
  4. CELEBREX [Concomitant]
     Dosage: UNK, UNK
  5. EFFEXOR XR [Concomitant]
     Dosage: UNK, UNK
  6. STATEX [Concomitant]
     Dosage: UNK, PRN
  7. SERAX [Concomitant]
     Dosage: UNK, QHS
  8. CARDIZEM CD [Concomitant]
  9. NEXIUM [Concomitant]
  10. CALCIUM [Concomitant]
     Dosage: UNK, BID
  11. COLACE [Concomitant]
     Dosage: UNK, BID
  12. SENOKOT [Concomitant]
     Dosage: UNK, BID
  13. FLEXERIL [Concomitant]
     Dosage: UNK, TID
  14. NOZINAN [Concomitant]
     Dosage: UNK, QHS
  15. LIPITOR [Concomitant]
     Dosage: 10
  16. VITAMIN D [Concomitant]
     Dosage: 400 MG, UNK
  17. M-ESLON [Concomitant]
     Dosage: UNK, BID

REACTIONS (5)
  - BLOOD CREATINE PHOSPHOKINASE INCREASED [None]
  - BLOOD CREATININE INCREASED [None]
  - DEATH [None]
  - RENAL FAILURE ACUTE [None]
  - RHABDOMYOLYSIS [None]
